FAERS Safety Report 25771369 (Version 1)
Quarter: 2025Q3

REPORT INFORMATION
  Report Type: Spontaneous
  Country: US (occurrence: US)
  Receive Date: 20250908
  Receipt Date: 20250908
  Transmission Date: 20251021
  Serious: No
  Sender: DOMPE FARMACEUTICI
  Company Number: US-FARMAPROD-202504-1250

PATIENT
  Sex: Female

DRUGS (11)
  1. OXERVATE [Suspect]
     Active Substance: CENEGERMIN-BKBJ
     Indication: Neurotrophic keratopathy
     Route: 047
     Dates: start: 20250305
  2. POTASSIUM CHLORIDE [Concomitant]
     Active Substance: POTASSIUM CHLORIDE
  3. PROZAC [Concomitant]
     Active Substance: FLUOXETINE HYDROCHLORIDE
  4. FLECAINIDE ACETATE [Concomitant]
     Active Substance: FLECAINIDE ACETATE
  5. ERYTHROMYCIN [Concomitant]
     Active Substance: ERYTHROMYCIN
  6. DILTIAZEM [Concomitant]
     Active Substance: DILTIAZEM
  7. ELIQUIS [Concomitant]
     Active Substance: APIXABAN
  8. PLAQUENIL [Concomitant]
     Active Substance: HYDROXYCHLOROQUINE SULFATE
  9. MELOXICAM [Concomitant]
     Active Substance: MELOXICAM
  10. XIIDRA [Concomitant]
     Active Substance: LIFITEGRAST
  11. LEVOTHYROXINE SODIUM [Concomitant]
     Active Substance: LEVOTHYROXINE SODIUM

REACTIONS (1)
  - Periorbital pain [Unknown]
